FAERS Safety Report 10411304 (Version 1)
Quarter: 2014Q3

REPORT INFORMATION
  Report Type: Other
  Country: GB (occurrence: GB)
  Receive Date: 20140826
  Receipt Date: 20140826
  Transmission Date: 20150326
  Serious: Yes (Hospitalization, Other)
  Sender: FDA-Public Use
  Company Number: GB-MYLAN-2014M1001872

PATIENT

DRUGS (10)
  1. LOSARTAN [Suspect]
     Active Substance: LOSARTAN
     Dosage: 100 MG, QD
     Route: 048
     Dates: end: 20130917
  2. SPIRONOLACTONE. [Suspect]
     Active Substance: SPIRONOLACTONE
     Dosage: EACH MORNING
     Route: 048
     Dates: end: 20130917
  3. ALENDRONIC ACID [Concomitant]
     Active Substance: ALENDRONIC ACID
     Dosage: 70 MG, QW
  4. AMITRIPTYLINE [Concomitant]
     Active Substance: AMITRIPTYLINE
     Dosage: 30 MG, QD AT NIGHT
  5. FERROUS GLUCONATE [Concomitant]
     Active Substance: FERROUS GLUCONATE
     Dosage: 300 MG, QD
  6. NAPROXEN. [Suspect]
     Active Substance: NAPROXEN
     Indication: ARTHRITIS
     Dosage: 250 MG, QD
     Route: 048
     Dates: end: 20130917
  7. SIMVASTATIN. [Concomitant]
     Active Substance: SIMVASTATIN
     Dosage: 40 MG, QD AT NIGHT
  8. ATENOLOL. [Concomitant]
     Active Substance: ATENOLOL
     Dosage: 25 MG, QD EVERY MORNING
  9. FUROSEMIDE. [Suspect]
     Active Substance: FUROSEMIDE
     Dosage: EACH MORNING
     Route: 048
     Dates: end: 20130917
  10. LEVOTHYROXINE [Concomitant]
     Active Substance: LEVOTHYROXINE
     Dosage: 75 ?G, QD EVERY MORNING

REACTIONS (2)
  - Renal failure acute [Recovered/Resolved]
  - Fall [Recovered/Resolved]

NARRATIVE: CASE EVENT DATE: 20130917
